FAERS Safety Report 24072106 (Version 1)
Quarter: 2024Q3

REPORT INFORMATION
  Report Type: Spontaneous
  Country: FR (occurrence: FR)
  Receive Date: 20240710
  Receipt Date: 20240710
  Transmission Date: 20241017
  Serious: Yes (Hospitalization, Other)
  Sender: IPCA
  Company Number: FR-IPCA LABORATORIES LIMITED-IPC-2024-FR-001694

PATIENT

DRUGS (1)
  1. TRAMADOL [Suspect]
     Active Substance: TRAMADOL\TRAMADOL HYDROCHLORIDE
     Indication: Pain
     Dosage: 100 MILLIGRAM PER MILLILITER
     Route: 048

REACTIONS (8)
  - Seizure [Recovering/Resolving]
  - Altered state of consciousness [Recovering/Resolving]
  - Miosis [Recovering/Resolving]
  - Somnolence [Recovering/Resolving]
  - Respiratory acidosis [Recovering/Resolving]
  - Hypotonia [Recovering/Resolving]
  - Toxicity to various agents [Recovering/Resolving]
  - Accidental overdose [Unknown]
